FAERS Safety Report 16868266 (Version 1)
Quarter: 2019Q3

REPORT INFORMATION
  Report Type: Report from Study
  Country: US (occurrence: US)
  Receive Date: 20190930
  Receipt Date: 20190930
  Transmission Date: 20191005
  Serious: Yes (Life-Threatening, Other)
  Sender: FDA-Public Use
  Company Number: US-RECRO GAINESVILLE LLC-REPH-2019-000205

PATIENT
  Age: 31 Year
  Sex: Male

DRUGS (1)
  1. VERAPAMIL HYDROCHLORIDE SUSTAINED RELEASE [Suspect]
     Active Substance: VERAPAMIL HYDROCHLORIDE
     Dosage: 71 MILLIGRAM/KILOGRAM (MG/KG), ONE TIME DOSE
     Route: 048

REACTIONS (15)
  - Overdose [Recovered/Resolved]
  - Bradycardia [Recovered/Resolved]
  - Atrioventricular block complete [Recovered/Resolved]
  - Pancytopenia [Recovered/Resolved]
  - Depressed level of consciousness [Recovered/Resolved]
  - Hypotension [Recovered/Resolved]
  - Ejection fraction decreased [Recovered/Resolved]
  - Acidosis [Recovered/Resolved]
  - Oliguria [Recovered/Resolved]
  - Hypophosphataemia [Recovered/Resolved]
  - Chronic kidney disease [Recovered/Resolved]
  - Blood ethanol increased [Recovered/Resolved]
  - Cholecystitis [Recovered/Resolved]
  - Hyperkalaemia [Recovered/Resolved]
  - Hypomagnesaemia [Recovered/Resolved]
